FAERS Safety Report 5622091-2 (Version None)
Quarter: 2008Q1

REPORT INFORMATION
  Report Type: 
  Country: None (occurrence: None)
  Receive Date: 20080206
  Receipt Date: 20080125
  Transmission Date: 20080703
  Serious: Yes (Other)
  Sender: FDA-Public Use
  Company Number: 2008AP000277

PATIENT
  Age: 43 Year
  Sex: Female

DRUGS (5)
  1. PAROXETINE HCL [Suspect]
     Dosage: 20 MG; QD PO, 20 MG; TAB; PO; QD
     Route: 048
     Dates: start: 20000202
  2. PAROXETINE HCL [Suspect]
     Dosage: 20 MG; QD PO, 20 MG; TAB; PO; QD
     Route: 048
     Dates: start: 20000202
  3. BUPROPION HYDROCHLORIDE [Concomitant]
  4. CITALOPRAM HYDROBROMIDE [Concomitant]
  5. AMFEBUTAMONE                   (BUPROPION) [Concomitant]

REACTIONS (6)
  - AGGRESSION [None]
  - ANGER [None]
  - DRUG WITHDRAWAL SYNDROME [None]
  - IRRITABILITY [None]
  - PAROSMIA [None]
  - SUICIDAL IDEATION [None]
